FAERS Safety Report 6058849-8 (Version None)
Quarter: 2009Q1

REPORT INFORMATION
  Report Type: 
  Country: None (occurrence: None)
  Receive Date: 20090130
  Receipt Date: 20090115
  Transmission Date: 20090719
  Serious: Yes (Other)
  Sender: FDA-Public Use
  Company Number: FR-AVENTIS-200812288FR

PATIENT
  Age: 54 Year
  Sex: Female
  Weight: 62 kg

DRUGS (4)
  1. ARAVA [Suspect]
     Indication: RHEUMATOID ARTHRITIS
     Route: 048
     Dates: start: 20060206, end: 20080515
  2. CORTANCYL [Concomitant]
     Indication: RHEUMATOID ARTHRITIS
     Route: 048
  3. CALPEROS                           /00108001/ [Concomitant]
     Indication: OSTEOPOROSIS
     Route: 048
  4. FOSAMAX [Concomitant]
     Indication: OSTEOPOROSIS
     Route: 048
     Dates: start: 20030101

REACTIONS (1)
  - MALIGNANT MELANOMA [None]
